FAERS Safety Report 22086603 (Version 2)
Quarter: 2023Q1

REPORT INFORMATION
  Report Type: Report from Study
  Country: NL (occurrence: NL)
  Receive Date: 20230312
  Receipt Date: 20230331
  Transmission Date: 20230418
  Serious: Yes (Death)
  Sender: FDA-Public Use
  Company Number: NL-002147023-NVSC2023NL055005

PATIENT
  Age: 82 Year
  Sex: Male
  Weight: 80 kg

DRUGS (1)
  1. LUTETIUM LU-177 VIPIVOTIDE TETRAXETAN [Suspect]
     Active Substance: LUTETIUM LU-177 VIPIVOTIDE TETRAXETAN
     Indication: Hormone-refractory prostate cancer
     Dosage: 7400 MBQ
     Route: 042
     Dates: start: 20221206, end: 20230301

REACTIONS (1)
  - Acute cardiac event [Fatal]
